FAERS Safety Report 18710518 (Version 5)
Quarter: 2021Q1

REPORT INFORMATION
  Report Type: Other
  Country: US (occurrence: US)
  Receive Date: 20210107
  Receipt Date: 20210325
  Transmission Date: 20210419
  Serious: No
  Sender: FDA-Public Use
  Company Number: US-ROCHE-2571657

PATIENT
  Sex: Female
  Weight: 147.55 kg

DRUGS (21)
  1. BENADRYL [Concomitant]
     Active Substance: DIPHENHYDRAMINE HYDROCHLORIDE
     Indication: HYPERSENSITIVITY
     Dosage: 2 PILLS AT NIGHT; DOSE WAS UNKNOWN
     Route: 048
  2. PROTONIX [Concomitant]
     Active Substance: PANTOPRAZOLE SODIUM
     Route: 048
  3. EQUATE (UNITED STATES) [Concomitant]
     Indication: HYPERSENSITIVITY
     Dosage: WALMART BRAND, 2 PILLS PER DAY; DOSE UNKNOWN?PILLS
     Route: 048
  4. OCREVUS [Suspect]
     Active Substance: OCRELIZUMAB
     Indication: MULTIPLE SCLEROSIS
     Dosage: ON 22/JAN/2021, RECEIVED OCRELIZUMAB OF AN UNKNOWN DOSAGE FORM
     Route: 042
     Dates: start: 20190712
  5. GABAPENTIN. [Concomitant]
     Active Substance: GABAPENTIN
     Indication: NEURALGIA
     Dosage: TWO?300 MG CAPSULES THREE TIMES PER DAY
     Route: 048
  6. ALEVE [Concomitant]
     Active Substance: NAPROXEN SODIUM
     Indication: ARTHRITIS
     Dosage: IN THE MORNING
     Route: 048
  7. MAGNESIUM [Concomitant]
     Active Substance: MAGNESIUM
     Indication: GASTRIC BYPASS
     Route: 048
  8. PROZAC [Concomitant]
     Active Substance: FLUOXETINE HYDROCHLORIDE
     Indication: DEPRESSION
     Dosage: (3) 20 MG CAPSULES IN THE MORNING
     Route: 048
  9. POTASSIUM [Concomitant]
     Active Substance: POTASSIUM
     Indication: GASTRIC BYPASS
     Dosage: DOSE WAS UNKNOWN
     Route: 048
  10. NEURONTIN [Concomitant]
     Active Substance: GABAPENTIN
     Indication: MYALGIA
     Route: 048
  11. VITAMIN C [Concomitant]
     Active Substance: ASCORBIC ACID
     Indication: GASTRIC BYPASS
     Route: 048
  12. NORETHINDRONE. [Concomitant]
     Active Substance: NORETHINDRONE
     Dosage: IN THE MORNING
     Route: 048
  13. NEURONTIN [Concomitant]
     Active Substance: GABAPENTIN
     Indication: ARTHRALGIA
  14. DALFAMPRIDINE. [Concomitant]
     Active Substance: DALFAMPRIDINE
     Route: 048
  15. OCREVUS [Suspect]
     Active Substance: OCRELIZUMAB
     Indication: RELAPSING MULTIPLE SCLEROSIS
     Dosage: ONGOING YES
     Route: 042
     Dates: start: 20190101
  16. OCREVUS [Suspect]
     Active Substance: OCRELIZUMAB
     Route: 065
  17. PROZAC [Concomitant]
     Active Substance: FLUOXETINE HYDROCHLORIDE
     Dosage: AT NIGHT
     Route: 048
  18. PROTONIX [Concomitant]
     Active Substance: PANTOPRAZOLE SODIUM
     Indication: HYPERCHLORHYDRIA
  19. VITAMIN B COMPLEX [Concomitant]
     Active Substance: CYANOCOBALAMIN\DEXPANTHENOL\NIACINAMIDE\PYRIDOXINE HYDROCHLORIDE\RIBOFLAVIN 5^-PHOSPHATE SODIUM\THIAMINE HYDROCHLORIDE\VITAMIN B COMPLEX
     Dosage: DOSE WAS UNKNOWN
     Route: 048
  20. PROTONIX [Concomitant]
     Active Substance: PANTOPRAZOLE SODIUM
     Indication: GASTRIC ULCER
     Route: 048
  21. ASPIRIN. [Concomitant]
     Active Substance: ASPIRIN
     Indication: THROMBOSIS
     Dosage: IN THE MORNING
     Route: 048

REACTIONS (20)
  - Balance disorder [Not Recovered/Not Resolved]
  - Feeling cold [Not Recovered/Not Resolved]
  - Eye infection [Unknown]
  - Urinary incontinence [Unknown]
  - Pain [Unknown]
  - Therapeutic response shortened [Unknown]
  - Swelling [Unknown]
  - Burning sensation [Not Recovered/Not Resolved]
  - Neuralgia [Not Recovered/Not Resolved]
  - Immunodeficiency [Recovered/Resolved]
  - Eye pruritus [Recovered/Resolved]
  - Vision blurred [Not Recovered/Not Resolved]
  - COVID-19 [Recovered/Resolved]
  - Visual impairment [Unknown]
  - Anxiety [Unknown]
  - Restless legs syndrome [Unknown]
  - Eye discharge [Not Recovered/Not Resolved]
  - Hypoaesthesia [Not Recovered/Not Resolved]
  - Fall [Unknown]
  - Peripheral coldness [Unknown]

NARRATIVE: CASE EVENT DATE: 2020
